FAERS Safety Report 17466818 (Version 1)
Quarter: 2020Q1

REPORT INFORMATION
  Report Type: Spontaneous
  Country: US (occurrence: US)
  Receive Date: 20200227
  Receipt Date: 20200227
  Transmission Date: 20200409
  Serious: No
  Sender: FDA-Public Use
  Company Number: US-MYLANLABS-2020M1017556

PATIENT
  Age: 82 Year
  Sex: Female
  Weight: 64 kg

DRUGS (3)
  1. ESOMEPRAZOLE MAGNESIUM D/R [Suspect]
     Active Substance: ESOMEPRAZOLE MAGNESIUM
     Indication: GASTROOESOPHAGEAL REFLUX DISEASE
  2. NEXIUM [Concomitant]
     Active Substance: ESOMEPRAZOLE MAGNESIUM
     Dosage: UNK
  3. ESOMEPRAZOLE MAGNESIUM D/R [Suspect]
     Active Substance: ESOMEPRAZOLE MAGNESIUM
     Indication: GASTRITIS
     Dosage: 1 DOSAGE FORM, QD (1 HOUR BEFORE MEAL DAILY)
     Route: 048
     Dates: start: 20200212, end: 20200213

REACTIONS (9)
  - Vomiting [Recovering/Resolving]
  - Pain [Recovering/Resolving]
  - Extra dose administered [Recovered/Resolved]
  - Off label use [Not Recovered/Not Resolved]
  - Discomfort [Recovering/Resolving]
  - Feeling abnormal [Recovering/Resolving]
  - Malaise [Not Recovered/Not Resolved]
  - Drug ineffective [Recovered/Resolved]
  - Burning sensation [Recovering/Resolving]

NARRATIVE: CASE EVENT DATE: 20200212
